FAERS Safety Report 21413402 (Version 2)
Quarter: 2022Q4

REPORT INFORMATION
  Report Type: Report from Study
  Country: GB (occurrence: GB)
  Receive Date: 20221006
  Receipt Date: 20221012
  Transmission Date: 20230112
  Serious: Yes (Hospitalization, Other)
  Sender: FDA-Public Use
  Company Number: GB-ABBVIE-4140688

PATIENT
  Sex: Male

DRUGS (1)
  1. HUMIRA [Suspect]
     Active Substance: ADALIMUMAB
     Indication: Psoriasis
     Route: 050
     Dates: start: 20220301

REACTIONS (12)
  - Mass [Unknown]
  - Dehydration [Unknown]
  - Skin exfoliation [Unknown]
  - Lower limb fracture [Unknown]
  - Psoriasis [Recovering/Resolving]
  - Syncope [Unknown]
  - Procedural complication [Unknown]
  - Skin swelling [Unknown]
  - Psoriasis [Unknown]
  - Hypophagia [Unknown]
  - Respiratory disorder [Unknown]
  - Skin disorder [Unknown]
